FAERS Safety Report 10076611 (Version 2)
Quarter: 2014Q4

REPORT INFORMATION
  Report Type: Report from Study
  Country: NL (occurrence: NL)
  Receive Date: 20140414
  Receipt Date: 20141104
  Transmission Date: 20150528
  Serious: Yes (Death, Other)
  Sender: FDA-Public Use
  Company Number: PHHY2014NL044693

PATIENT
  Sex: Male

DRUGS (4)
  1. ZOMETA [Suspect]
     Active Substance: ZOLEDRONIC ACID
     Dosage: 4 MG PER 100 ML ONCE EVERY 4 WEEKS
     Route: 042
     Dates: start: 20140314
  2. ZOMETA [Suspect]
     Active Substance: ZOLEDRONIC ACID
     Dosage: 4 MG PER 100 ML ONCE EVERY 4 WEEKS
     Route: 042
     Dates: start: 20130610
  3. ZOMETA [Suspect]
     Active Substance: ZOLEDRONIC ACID
     Indication: PROSTATE CANCER METASTATIC
     Dosage: 4 MG PER 100 ML ONCE EVERY 4 WEEKS
     Route: 042
  4. ZOMETA [Suspect]
     Active Substance: ZOLEDRONIC ACID
     Dosage: 4 MG PER 100 ML ONCE EVERY 4 WEEKS
     Route: 042
     Dates: start: 20140214

REACTIONS (1)
  - Terminal state [Fatal]
